FAERS Safety Report 19176155 (Version 2)
Quarter: 2021Q2

REPORT INFORMATION
  Report Type: Spontaneous
  Country: CZ (occurrence: CZ)
  Receive Date: 20210424
  Receipt Date: 20210602
  Transmission Date: 20210717
  Serious: Yes (Other)
  Sender: FDA-Public Use
  Company Number: NVSC2021CZ086123

PATIENT
  Sex: Female

DRUGS (4)
  1. INDAPAMID [Concomitant]
     Active Substance: INDAPAMIDE
     Indication: HYPERTENSION
     Dosage: UNK
     Route: 065
  2. JOVESTO [Suspect]
     Active Substance: DESLORATADINE
     Dosage: UNK, BID (1?0?1) (FOR 3 DAYS)
     Route: 065
  3. PRENESSA [Concomitant]
     Active Substance: PERINDOPRIL
     Indication: HYPERTENSION
     Dosage: UNK
     Route: 065
  4. JOVESTO [Suspect]
     Active Substance: DESLORATADINE
     Indication: CONJUNCTIVITIS ALLERGIC
     Dosage: 5 MG, QD (0?0?1)(1 TABLET A DAY)
     Route: 065
     Dates: start: 20210331, end: 20210409

REACTIONS (1)
  - Blood pressure increased [Recovered/Resolved]
